FAERS Safety Report 4435761-9 (Version None)
Quarter: 2004Q3

REPORT INFORMATION
  Report Type: 
  Country: None (occurrence: None)
  Receive Date: 20040813
  Receipt Date: 20040813
  Transmission Date: 20050211
  Serious: Yes (Other)
  Sender: FDA-Public Use
  Company Number: 2004056132

PATIENT
  Sex: Male

DRUGS (1)
  1. LIPITOR [Suspect]
     Indication: CAROTID ARTERY STENOSIS
     Dosage: 40 MG
     Dates: end: 20040701

REACTIONS (2)
  - MALIGNANT MELANOMA [None]
  - PLEURISY [None]
